FAERS Safety Report 7358475-4 (Version None)
Quarter: 2011Q1

REPORT INFORMATION
  Report Type: 
  Country: None (occurrence: None)
  Receive Date: 20110317
  Receipt Date: 20110307
  Transmission Date: 20110831
  Serious: Yes (Other)
  Sender: FDA-Public Use
  Company Number: CA-JNJFOC-20100707379

PATIENT
  Sex: Male
  Weight: 79 kg

DRUGS (5)
  1. REMICADE [Suspect]
     Indication: ANKYLOSING SPONDYLITIS
     Route: 042
  2. HYDROMORPHONE [Concomitant]
     Indication: ILL-DEFINED DISORDER
     Route: 048
  3. PRILOSEC [Concomitant]
     Indication: ILL-DEFINED DISORDER
     Route: 048
  4. ZOPICLONE [Concomitant]
     Indication: ILL-DEFINED DISORDER
     Route: 048
  5. REMICADE [Suspect]
     Route: 042

REACTIONS (4)
  - GASTROOESOPHAGEAL REFLUX DISEASE [None]
  - OESOPHAGEAL RUPTURE [None]
  - HAEMATOCHEZIA [None]
  - ABNORMAL FAECES [None]
